FAERS Safety Report 15686268 (Version 2)
Quarter: 2019Q1

REPORT INFORMATION
  Report Type: Spontaneous
  Country: CA (occurrence: CA)
  Receive Date: 20181204
  Receipt Date: 20190321
  Transmission Date: 20190417
  Serious: Yes (Life-Threatening, Other)
  Sender: FDA-Public Use
  Company Number: CA-ICU MEDICAL, INC.-ICU2018CA00184

PATIENT

DRUGS (11)
  1. BUTRANS [Suspect]
     Active Substance: BUPRENORPHINE
     Indication: PAIN
     Route: 062
  2. CODEINE [Suspect]
     Active Substance: CODEINE
     Indication: PAIN
     Route: 065
  3. OXYCONTIN [Suspect]
     Active Substance: OXYCODONE HYDROCHLORIDE
     Indication: PAIN
     Dosage: 2.0 DOSAGE FORM
     Route: 065
  4. DICLOFENAC SODIUM. [Suspect]
     Active Substance: DICLOFENAC SODIUM
     Indication: PAIN
     Route: 065
  5. MORPHINE SULFATE INJECTION [Suspect]
     Active Substance: MORPHINE SULFATE
     Indication: PAIN
     Route: 065
  6. HYDROCODONE BITARTRATE. [Suspect]
     Active Substance: HYDROCODONE BITARTRATE
     Indication: PAIN
     Route: 065
  7. TYLENOL WITH CODEINE [Suspect]
     Active Substance: ACETAMINOPHEN\CODEINE PHOSPHATE
     Indication: PAIN
     Route: 065
  8. ACETAMINOPHEN AND CODEINE [Suspect]
     Active Substance: ACETAMINOPHEN\CODEINE PHOSPHATE
     Indication: PAIN
     Route: 065
  9. DICLOFENAC POTASSIUM. [Suspect]
     Active Substance: DICLOFENAC POTASSIUM
     Indication: PAIN
     Route: 065
  10. ACETAMINOPHEN. [Suspect]
     Active Substance: ACETAMINOPHEN
     Indication: PAIN
     Route: 065
  11. CELEBREX [Suspect]
     Active Substance: CELECOXIB
     Indication: PAIN
     Route: 065

REACTIONS (11)
  - Back pain [Unknown]
  - Gastric ulcer [Unknown]
  - Bedridden [Unknown]
  - Confusional state [Unknown]
  - Condition aggravated [Unknown]
  - Overdose [Unknown]
  - Overweight [Unknown]
  - Dysphagia [Unknown]
  - Arthralgia [Unknown]
  - Mental impairment [Unknown]
  - Suicidal ideation [Unknown]
